FAERS Safety Report 19401763 (Version 2)
Quarter: 2021Q2

REPORT INFORMATION
  Report Type: Spontaneous
  Country: IN (occurrence: IN)
  Receive Date: 20210611
  Receipt Date: 20210624
  Transmission Date: 20210717
  Serious: Yes (Other)
  Sender: FDA-Public Use
  Company Number: IN-CIPLA LTD.-2021IN03971

PATIENT

DRUGS (5)
  1. ASTHALIN [SALBUTAMOL] [Suspect]
     Active Substance: ALBUTEROL
     Dosage: 3?5 PUFFS DAILY, PRN
     Route: 065
  2. ASTHALIN [SALBUTAMOL] [Suspect]
     Active Substance: ALBUTEROL
     Dosage: 3?5 PUFFS DAILY, PRN
     Route: 065
  3. ASTHALIN [SALBUTAMOL] [Suspect]
     Active Substance: ALBUTEROL
     Indication: ASTHMA
     Dosage: 3?5 PUFFS DAILY, PRN
     Route: 065
     Dates: start: 1990
  4. ASTHALIN [SALBUTAMOL] [Suspect]
     Active Substance: ALBUTEROL
     Dosage: 3?5 PUFFS DAILY, PRN
     Route: 065
  5. AMLOVAS [Concomitant]
     Indication: BLOOD PRESSURE ABNORMAL
     Dosage: UNK, QD, ONCE A DAY, SINCE 4 YEARS
     Route: 065

REACTIONS (2)
  - Device delivery system issue [Unknown]
  - Drug ineffective [Recovered/Resolved]

NARRATIVE: CASE EVENT DATE: 20210530
